FAERS Safety Report 5112677-6 (Version None)
Quarter: 2006Q3

REPORT INFORMATION
  Report Type: 
  Country: None (occurrence: None)
  Receive Date: 20060922
  Receipt Date: 20050125
  Transmission Date: 20061208
  Serious: Yes (Other)
  Sender: FDA-Public Use
  Company Number: US-GLAXOSMITHKLINE-A0542273A

PATIENT
  Age: 52 Year
  Sex: Female
  Weight: 96.4 kg

DRUGS (14)
  1. PAXIL [Suspect]
     Indication: DEPRESSION
     Route: 048
     Dates: start: 19960905
  2. PAROXETINE HYDROCHLORIDE [Suspect]
     Indication: DEPRESSION
     Dosage: 40MG PER DAY
     Route: 048
     Dates: start: 20041001
  3. STEROIDS [Suspect]
     Route: 065
  4. PAIN MEDICATION [Suspect]
     Route: 065
  5. ANESTHESIA [Suspect]
     Route: 065
  6. SOMA [Concomitant]
  7. BUSPAR [Concomitant]
     Dates: start: 19960905
  8. AMBIEN [Concomitant]
     Dates: end: 19960905
  9. ZOLOFT [Concomitant]
     Dates: start: 20040401
  10. TRAZODONE HCL [Concomitant]
  11. SEROQUEL [Concomitant]
     Dates: end: 20050201
  12. VYTORIN [Concomitant]
  13. LORTAB [Concomitant]
  14. TRAMADOL HCL [Concomitant]

REACTIONS (19)
  - ABNORMAL DREAMS [None]
  - ACTIVITIES OF DAILY LIVING IMPAIRED [None]
  - ANXIETY [None]
  - CONFUSIONAL STATE [None]
  - DRUG DEPENDENCE [None]
  - DRUG INEFFECTIVE [None]
  - DRUG INTERACTION [None]
  - DRUG WITHDRAWAL SYNDROME [None]
  - HEADACHE [None]
  - INFLUENZA LIKE ILLNESS [None]
  - INSOMNIA [None]
  - MEMORY IMPAIRMENT [None]
  - PARAESTHESIA [None]
  - PARANOIA [None]
  - PSYCHOTIC DISORDER [None]
  - SENSORY DISTURBANCE [None]
  - STRESS [None]
  - SUICIDAL IDEATION [None]
  - TREMOR [None]
